FAERS Safety Report 24732224 (Version 2)
Quarter: 2024Q4

REPORT INFORMATION
  Report Type: Spontaneous
  Country: US (occurrence: US)
  Receive Date: 20241213
  Receipt Date: 20241216
  Transmission Date: 20250115
  Serious: No
  Sender: CALLIDITAS THERAPEUTICS AB
  Company Number: US-Calliditas-2024CAL02846

PATIENT
  Age: 73 Year
  Sex: Female
  Weight: 58 kg

DRUGS (11)
  1. EFFEXOR [Concomitant]
     Active Substance: VENLAFAXINE HYDROCHLORIDE
  2. FARXIGA [Concomitant]
     Active Substance: DAPAGLIFLOZIN PROPANEDIOL
  3. HYDROCHLOROTHIAZIDE [Concomitant]
     Active Substance: HYDROCHLOROTHIAZIDE
  4. LEVOTHYROXINE [Concomitant]
     Active Substance: LEVOTHYROXINE
  5. OZEMPIC [Concomitant]
     Active Substance: SEMAGLUTIDE
  6. TAMOXIFEN [Concomitant]
     Active Substance: TAMOXIFEN
  7. VERAPAMIL [Concomitant]
     Active Substance: VERAPAMIL HYDROCHLORIDE
  8. XALATAN [Concomitant]
     Active Substance: LATANOPROST
  9. TARPEYO [Suspect]
     Active Substance: BUDESONIDE
     Indication: IgA nephropathy
     Route: 048
     Dates: start: 20240725
  10. ROSUVASTATIN [Concomitant]
     Active Substance: ROSUVASTATIN
  11. AMINOSALICYLATE CALCIUM [Concomitant]
     Active Substance: AMINOSALICYLATE CALCIUM

REACTIONS (3)
  - Blood pressure increased [Unknown]
  - Weight increased [Unknown]
  - Drug ineffective [Unknown]
